FAERS Safety Report 19560533 (Version 1)
Quarter: 2021Q3

REPORT INFORMATION
  Report Type: Spontaneous
  Country: US (occurrence: US)
  Receive Date: 20210715
  Receipt Date: 20210715
  Transmission Date: 20211014
  Serious: Yes (Death)
  Sender: FDA-Public Use
  Company Number: None

PATIENT
  Age: 87 Year
  Sex: Male
  Weight: 61.65 kg

DRUGS (15)
  1. CARVEDILOL 6.25MG [Concomitant]
     Active Substance: CARVEDILOL
  2. ROSUVASTATIN 40MG [Concomitant]
     Active Substance: ROSUVASTATIN
  3. COSOPT 22.3?6.8MG/ML [Concomitant]
  4. LORATADINE 10MG [Concomitant]
     Active Substance: LORATADINE
  5. ONDANSETRON 8MG [Concomitant]
     Active Substance: ONDANSETRON
  6. FAMOTIDINE 40MG [Concomitant]
     Active Substance: FAMOTIDINE
  7. TRAVATAN Z [Concomitant]
     Active Substance: TRAVOPROST
  8. VITAMIN D 25MCG [Concomitant]
  9. MEKTOVI [Suspect]
     Active Substance: BINIMETINIB
     Indication: COLON CANCER
     Route: 048
     Dates: start: 20210213, end: 20210704
  10. FLOMAX 0.4MG [Concomitant]
  11. BRAFTOVI [Suspect]
     Active Substance: ENCORAFENIB
     Indication: COLON CANCER
     Route: 048
     Dates: start: 20210213, end: 20210704
  12. BRIMONIDINE?DORZOLAMIDE 0.15?2% [Concomitant]
  13. ASPIRIN 81MG [Concomitant]
     Active Substance: ASPIRIN
  14. VITAMIN C 500MG [Concomitant]
  15. FINASTERIDE 1MG [Concomitant]
     Active Substance: FINASTERIDE

REACTIONS (1)
  - Death [None]
